FAERS Safety Report 6525273-0 (Version None)
Quarter: 2010Q1

REPORT INFORMATION
  Report Type: 
  Country: None (occurrence: None)
  Receive Date: 20100104
  Receipt Date: 20091222
  Transmission Date: 20100710
  Serious: Yes (Other)
  Sender: FDA-Public Use
  Company Number: US-PFIZER INC-2009313983

PATIENT
  Sex: Female

DRUGS (3)
  1. SPIRONOLACTONE [Suspect]
     Dosage: 25 MG, UNK
  2. SPIRONOLACTONE [Suspect]
     Dosage: 50 MG, UNK
  3. ALDACTONE [Suspect]
     Dosage: 25 MG, 1X/DAY

REACTIONS (2)
  - HYPOKALAEMIA [None]
  - ILEUS PARALYTIC [None]
